FAERS Safety Report 14403357 (Version 1)
Quarter: 2018Q1

REPORT INFORMATION
  Report Type: Spontaneous
  Country: US (occurrence: US)
  Receive Date: 20180116
  Receipt Date: 20180116
  Transmission Date: 20180509
  Serious: No
  Sender: FDA-Public Use
  Company Number: None

PATIENT
  Age: 55 Year
  Sex: Female

DRUGS (1)
  1. CYCLOSPORINE CAP 25MG MOD [Suspect]
     Active Substance: CYCLOSPORINE
     Indication: CHORIORETINAL DISORDER
     Dosage: 25MG 4CAM AND 3C PO
     Route: 048

REACTIONS (2)
  - Feeling jittery [None]
  - Insomnia [None]

NARRATIVE: CASE EVENT DATE: 20180115
